FAERS Safety Report 6570429-4 (Version None)
Quarter: 2010Q1

REPORT INFORMATION
  Report Type: 
  Country: None (occurrence: None)
  Receive Date: 20100204
  Receipt Date: 20090415
  Transmission Date: 20100710
  Serious: No
  Sender: FDA-Public Use
  Company Number: A0778955A

PATIENT
  Sex: Female

DRUGS (1)
  1. ARIXTRA [Suspect]
     Dates: start: 20090408

REACTIONS (2)
  - DRUG ADMINISTRATION ERROR [None]
  - INCORRECT ROUTE OF DRUG ADMINISTRATION [None]
